FAERS Safety Report 11830075 (Version 1)
Quarter: 2015Q4

REPORT INFORMATION
  Report Type: Spontaneous
  Country: US (occurrence: US)
  Receive Date: 20151213
  Receipt Date: 20151213
  Transmission Date: 20160305
  Serious: No
  Sender: FDA-Public Use
  Company Number: US-BRISTOL-MYERS SQUIBB COMPANY-BMS-2015-084607

PATIENT
  Age: 85 Year
  Sex: Female
  Weight: 61 kg

DRUGS (2)
  1. COUMADIN [Suspect]
     Active Substance: WARFARIN SODIUM
     Indication: PRODUCT USED FOR UNKNOWN INDICATION
     Route: 065
  2. IBRANCE [Suspect]
     Active Substance: PALBOCICLIB
     Indication: BREAST CANCER
     Dosage: 125 MG, UNK
     Route: 048
     Dates: start: 20151105

REACTIONS (6)
  - Diarrhoea [Unknown]
  - Noninfective gingivitis [Unknown]
  - Pruritus [Unknown]
  - International normalised ratio abnormal [Unknown]
  - Pain [Unknown]
  - Nausea [Unknown]
